FAERS Safety Report 4979118-0 (Version None)
Quarter: 2006Q2

REPORT INFORMATION
  Report Type: 
  Country: None (occurrence: None)
  Receive Date: 20060421
  Receipt Date: 20060411
  Transmission Date: 20061013
  Serious: Yes (Hospitalization)
  Sender: FDA-Public Use
  Company Number: GB-JNJFOC-20060303062

PATIENT

DRUGS (2)
  1. DURAGESIC-50 [Suspect]
     Indication: PAIN
     Dosage: PATIENT RECEIVED MATRIX PATCHES CUT INTO 1/2 TO 1/4 . STRENGTH UNKNOWN.
     Route: 062
  2. DURAGESIC-100 [Suspect]
     Indication: PAIN
     Dosage: DOSE WAS A  PATCH CUT IN HALF EVERY 72 HOURS - STRENGTH UNKNOWN
     Route: 062

REACTIONS (1)
  - WRONG TECHNIQUE IN DRUG USAGE PROCESS [None]
